FAERS Safety Report 8821223 (Version 3)
Quarter: 2013Q3

REPORT INFORMATION
  Report Type: Report from Study
  Country: CH (occurrence: CH)
  Receive Date: 20121002
  Receipt Date: 20130906
  Transmission Date: 20140515
  Serious: Yes (Hospitalization)
  Sender: FDA-Public Use
  Company Number: CH-BRISTOL-MYERS SQUIBB COMPANY-16986556

PATIENT
  Age: 65 Year
  Sex: Female
  Weight: 56 kg

DRUGS (6)
  1. PACLITAXEL [Suspect]
     Indication: OVARIAN CANCER
     Dosage: 280MG/M2?LAST DOSE PRIOR TO SAE: 16MAR12
     Route: 042
     Dates: start: 20120223, end: 20120405
  2. CARBOPLATIN [Suspect]
     Indication: OVARIAN CANCER
     Dosage: 540MG/M2?LAST DOSE PRIOR TO SAE: 16MAR12
     Route: 042
     Dates: start: 20120223, end: 20120405
  3. AVASTIN [Suspect]
     Indication: OVARIAN CANCER
     Dosage: LAST DOSE PRIOR TO SAE: 16MAR12
     Route: 042
     Dates: start: 20120316, end: 20120405
  4. LESCOL [Concomitant]
     Dates: start: 20120220
  5. ELTROXIN [Concomitant]
  6. CO-RENITEN [Concomitant]
     Dates: start: 2012

REACTIONS (5)
  - Hypokalaemia [Recovered/Resolved]
  - Fatigue [Recovered/Resolved]
  - Decreased appetite [Recovered/Resolved]
  - Pelvic abscess [Recovered/Resolved]
  - Large intestine perforation [Recovered/Resolved]
